FAERS Safety Report 18667593 (Version 1)
Quarter: 2020Q4

REPORT INFORMATION
  Report Type: Spontaneous
  Country: US (occurrence: US)
  Receive Date: 20201228
  Receipt Date: 20201228
  Transmission Date: 20210114
  Serious: Yes (Other)
  Sender: FDA-Public Use
  Company Number: US-ASTRAZENECA-2020SF72444

PATIENT
  Age: 29073 Day
  Sex: Male
  Weight: 79.4 kg

DRUGS (1)
  1. SEROQUEL [Suspect]
     Active Substance: QUETIAPINE FUMARATE
     Route: 048

REACTIONS (12)
  - Heart rate increased [Unknown]
  - Crying [Unknown]
  - Joint swelling [Unknown]
  - Wrong product administered [Unknown]
  - Gait disturbance [Unknown]
  - Insomnia [Unknown]
  - Hypotension [Unknown]
  - Product dose omission issue [Recovered/Resolved]
  - Balance disorder [Unknown]
  - Diplopia [Unknown]
  - Dizziness [Unknown]
  - Dyspnoea [Unknown]

NARRATIVE: CASE EVENT DATE: 20201221
